FAERS Safety Report 5758816-5 (Version None)
Quarter: 2008Q2

REPORT INFORMATION
  Report Type: 
  Country: None (occurrence: None)
  Receive Date: 20080604
  Receipt Date: 20080527
  Transmission Date: 20081010
  Serious: Yes (Hospitalization)
  Sender: FDA-Public Use
  Company Number: GB-ROCHE-566787

PATIENT
  Sex: Female
  Weight: 116 kg

DRUGS (8)
  1. ORLISTAT [Suspect]
     Indication: OBESITY
     Route: 048
     Dates: start: 20071127, end: 20080420
  2. PROZAC [Concomitant]
     Indication: DEPRESSION
     Route: 048
  3. MORPHINE [Concomitant]
     Indication: PAIN
     Dosage: ENETERED AS MORPHINE SULPHATE.
     Route: 048
  4. AMITRIPTYLINE HCL [Concomitant]
     Indication: DEPRESSION
     Dosage: ENTERED AS AMOTRIPTOLINE.
     Route: 048
  5. LIVIAL [Concomitant]
     Indication: DRUG USE FOR UNKNOWN INDICATION
     Dosage: ENTERED AS LIVALTIBOLONE.
     Route: 048
  6. ATENOLOL [Concomitant]
     Indication: BLOOD PRESSURE
     Route: 048
  7. BENDROFLUAZIDE [Concomitant]
     Indication: BLOOD PRESSURE
     Route: 048
  8. CARBAMAZEPINE [Concomitant]
     Indication: NERVE BLOCK
     Route: 048

REACTIONS (1)
  - RENAL FAILURE [None]
